FAERS Safety Report 5883296-9 (Version None)
Quarter: 2008Q3

REPORT INFORMATION
  Report Type: 
  Country: None (occurrence: None)
  Receive Date: 20080910
  Receipt Date: 20080910
  Transmission Date: 20090109
  Serious: Yes (Life-Threatening)
  Sender: FDA-Public Use
  Company Number: None

PATIENT
  Age: 75 Year
  Sex: Female
  Weight: 52.1637 kg

DRUGS (1)
  1. MOVIPREP [Suspect]
     Indication: COLONOSCOPY
     Dosage: 2 LITERS DIVIDED 1 L DOSES PO
     Route: 048
     Dates: start: 20080902, end: 20080903

REACTIONS (3)
  - BLOOD PRESSURE FLUCTUATION [None]
  - HYPERTENSIVE CRISIS [None]
  - PHARMACEUTICAL PRODUCT COMPLAINT [None]
